FAERS Safety Report 23168482 (Version 3)
Quarter: 2023Q4

REPORT INFORMATION
  Report Type: Report from Study
  Country: CO (occurrence: CO)
  Receive Date: 20231110
  Receipt Date: 20231204
  Transmission Date: 20240110
  Serious: Yes (Hospitalization)
  Sender: FDA-Public Use
  Company Number: CO-ABBVIE-5488186

PATIENT
  Sex: Female
  Weight: 43 kg

DRUGS (1)
  1. RINVOQ [Suspect]
     Active Substance: UPADACITINIB
     Indication: Rheumatoid arthritis
     Dosage: FORM STRENGTH: 15 MILLIGRAM
     Route: 048
     Dates: start: 20230411

REACTIONS (7)
  - Urinary tract infection [Recovered/Resolved]
  - Unevaluable event [Recovering/Resolving]
  - Escherichia infection [Recovering/Resolving]
  - Dysuria [Recovered/Resolved]
  - Urinary tract infection [Recovering/Resolving]
  - Pelvic pain [Recovered/Resolved]
  - Hypersensitivity [Unknown]

NARRATIVE: CASE EVENT DATE: 20230101
